FAERS Safety Report 4302773-5 (Version None)
Quarter: 2004Q1

REPORT INFORMATION
  Report Type: 
  Country: None (occurrence: None)
  Receive Date: 20040224
  Receipt Date: 20031222
  Transmission Date: 20041129
  Serious: No
  Sender: FDA-Public Use
  Company Number: US-BRISTOL-MYERS SQUIBB COMPANY-12462917

PATIENT
  Age: 38 Year
  Sex: Female
  Weight: 46 kg

DRUGS (1)
  1. KENALOG [Suspect]
     Indication: SCIATICA
     Dosage: ROUTE: INJECTION
     Dates: start: 20031216, end: 20031216

REACTIONS (6)
  - ANXIETY [None]
  - DIZZINESS [None]
  - MENTAL STATUS CHANGES [None]
  - PALPITATIONS [None]
  - THYROID FUNCTION TEST ABNORMAL [None]
  - WEIGHT DECREASED [None]
